FAERS Safety Report 14964720 (Version 1)
Quarter: 2018Q2

REPORT INFORMATION
  Report Type: Spontaneous
  Country: HR (occurrence: HR)
  Receive Date: 20180601
  Receipt Date: 20180601
  Transmission Date: 20180711
  Serious: Yes (Hospitalization)
  Sender: FDA-Public Use
  Company Number: HR-UCBSA-2018022956

PATIENT
  Sex: Male

DRUGS (13)
  1. LEFLUNOMIDE. [Suspect]
     Active Substance: LEFLUNOMIDE
     Indication: POLYARTHRITIS
     Dosage: 20 MG, SSZ 2X2
  2. LEFLUNOMIDE. [Suspect]
     Active Substance: LEFLUNOMIDE
     Dosage: 20 MG, ONCE DAILY (QD)
  3. FOLACIN [Suspect]
     Active Substance: FOLIC ACID
     Indication: POLYARTHRITIS
     Dosage: 10 MG, ONCE DAILY (QD)
  4. DECORTIN [Suspect]
     Active Substance: PREDNISONE
     Indication: POLYARTHRITIS
     Dosage: 15 MG, UNK
  5. DECORTIN [Suspect]
     Active Substance: PREDNISONE
     Dosage: 20 MG, ONCE DAILY (QD)
  6. EBETREXAT [Suspect]
     Active Substance: METHOTREXATE SODIUM
     Indication: POLYARTHRITIS
     Dosage: 15 MG, UNK
     Route: 058
  7. METHOTREXATE. [Suspect]
     Active Substance: METHOTREXATE
     Dosage: 15 MG, WEEKLY (QW)
     Route: 048
  8. INFLIXIMAB [Suspect]
     Active Substance: INFLIXIMAB
     Indication: POLYARTHRITIS
     Dosage: 5 MG/KG, EVERY 8 WEEKS
     Route: 042
  9. CIMZIA [Suspect]
     Active Substance: CERTOLIZUMAB PEGOL
     Indication: POLYARTHRITIS
     Dosage: UNK
  10. METHOTREXATE. [Suspect]
     Active Substance: METHOTREXATE
     Indication: POLYARTHRITIS
     Dosage: 20 MG, WEEKLY (QW)
  11. SULPHASALAZINE [Suspect]
     Active Substance: SULFASALAZINE
     Indication: POLYARTHRITIS
     Dosage: 2X2 TBL
  12. DECORTIN [Suspect]
     Active Substance: PREDNISONE
     Dosage: 30 MG, UNK
  13. DECORTIN [Suspect]
     Active Substance: PREDNISONE
     Dosage: 10 MG, UNK

REACTIONS (11)
  - Dermatitis psoriasiform [Recovering/Resolving]
  - Spondylitis [Recovering/Resolving]
  - General physical health deterioration [Unknown]
  - Joint contracture [Recovering/Resolving]
  - Inflammatory marker increased [Recovering/Resolving]
  - Crying [Unknown]
  - Pain [Recovered/Resolved]
  - Sacroiliitis [Recovering/Resolving]
  - Musculoskeletal stiffness [Recovered/Resolved]
  - Depression [Recovered/Resolved]
  - Disease progression [Recovered/Resolved]

NARRATIVE: CASE EVENT DATE: 20170123
